FAERS Safety Report 8012878-3 (Version None)
Quarter: 2011Q4

REPORT INFORMATION
  Report Type: 
  Country: None (occurrence: None)
  Receive Date: 20111223
  Receipt Date: 20111107
  Transmission Date: 20120403
  Serious: Yes (Other)
  Sender: FDA-Public Use
  Company Number: SPI201100313

PATIENT
  Age: 22 Year
  Sex: Female
  Weight: 65.7716 kg

DRUGS (3)
  1. AMITIZA [Suspect]
     Indication: IRRITABLE BOWEL SYNDROME
     Dosage: 8 MCG, BID, ORAL    8MCG, Q 3 DAYS, ORAL
     Route: 048
     Dates: start: 20110926, end: 20110926
  2. AMITIZA [Suspect]
     Indication: IRRITABLE BOWEL SYNDROME
     Dosage: 8 MCG, BID, ORAL    8MCG, Q 3 DAYS, ORAL
     Route: 048
     Dates: start: 20110101, end: 20110101
  3. MULTIVITAMIN [Concomitant]

REACTIONS (1)
  - COUGH [None]
